FAERS Safety Report 7483168-2 (Version None)
Quarter: 2011Q2

REPORT INFORMATION
  Report Type: 
  Country: None (occurrence: None)
  Receive Date: 20110516
  Receipt Date: 20101027
  Transmission Date: 20111010
  Serious: No
  Sender: FDA-Public Use
  Company Number: US-AMGEN-KDL427896

PATIENT
  Age: 60 Year
  Sex: Female

DRUGS (9)
  1. ENBREL [Suspect]
     Indication: RHEUMATOID ARTHRITIS
     Dosage: 50 MG, QWK
     Route: 058
     Dates: start: 20100215
  2. ENBREL [Suspect]
     Indication: OSTEOARTHRITIS
  3. ATENOLOL [Concomitant]
  4. LORAZEPAM [Concomitant]
  5. METHOTREXATE [Concomitant]
     Dosage: UNK UNK, UNK
  6. TYLENOL (CAPLET) [Concomitant]
  7. LEXAPRO [Concomitant]
  8. PREMARIN [Concomitant]
  9. OMEPRAZOLE [Concomitant]

REACTIONS (4)
  - HYPERCHLORHYDRIA [None]
  - TOOTH DISORDER [None]
  - DIARRHOEA [None]
  - NAUSEA [None]
